FAERS Safety Report 24230706 (Version 3)
Quarter: 2024Q4

REPORT INFORMATION
  Report Type: Spontaneous
  Country: JP (occurrence: JP)
  Receive Date: 20240821
  Receipt Date: 20241113
  Transmission Date: 20250115
  Serious: No
  Sender: MERCK
  Company Number: JP-MSD-M2024-32258

PATIENT
  Age: 75 Year
  Sex: Female

DRUGS (1)
  1. LAGEVRIO [Suspect]
     Active Substance: MOLNUPIRAVIR
     Indication: COVID-19 treatment
     Dosage: 800 MILLIGRAM, BID
     Route: 048
     Dates: start: 20240817, end: 20240819

REACTIONS (4)
  - Body temperature decreased [Recovered/Resolved]
  - Illness [Unknown]
  - Dizziness [Recovered/Resolved]
  - Product use complaint [Unknown]

NARRATIVE: CASE EVENT DATE: 20240101
